FAERS Safety Report 14942844 (Version 3)
Quarter: 2018Q3

REPORT INFORMATION
  Report Type: Spontaneous
  Country: BR (occurrence: BR)
  Receive Date: 20180528
  Receipt Date: 20180919
  Transmission Date: 20181010
  Serious: Yes (Hospitalization, Disabling, Other)
  Sender: FDA-Public Use
  Company Number: BR-B.I. PHARMACEUTICALS,INC./RIDGEFIELD-2018-BI-027152

PATIENT
  Age: 87 Year
  Sex: Female
  Weight: 60 kg

DRUGS (13)
  1. ATENSINA [Suspect]
     Active Substance: CLONIDINE
     Indication: HYPERTENSION
     Dosage: THERAPY START DATE: MORE THAN 10 YEARS AGO.?STOP DATE: APPROXIMATELY DEC?2017.
     Route: 048
  2. OSCAL D [Concomitant]
     Active Substance: CALCIUM CARBONATE\CHOLECALCIFEROL
     Indication: MINERAL SUPPLEMENTATION
     Dosage: DOSE:500+400MG   DAILY DOSE: 1000MG+800MG
     Route: 048
     Dates: start: 201705
  3. PREGABALINA [Concomitant]
     Active Substance: PREGABALIN
     Indication: FIBROMYALGIA
     Route: 048
     Dates: start: 2013, end: 201805
  4. ZYLORIC [Concomitant]
     Active Substance: ALLOPURINOL
     Indication: BLOOD URIC ACID INCREASED
     Route: 048
     Dates: start: 201805
  5. DEXILANT [Concomitant]
     Active Substance: DEXLANSOPRAZOLE
     Indication: GASTROOESOPHAGEAL REFLUX DISEASE
     Route: 048
     Dates: start: 201705, end: 201712
  6. ESPRAN [Concomitant]
     Active Substance: ESCITALOPRAM OXALATE
     Indication: ARRHYTHMIA
     Route: 048
     Dates: start: 201705
  7. DIAMICRON [Concomitant]
     Active Substance: GLICLAZIDE
     Indication: DIABETES MELLITUS
     Route: 048
     Dates: start: 2015, end: 201711
  8. GALVUS MET [Concomitant]
     Active Substance: METFORMIN HYDROCHLORIDE\VILDAGLIPTIN
     Indication: DIABETES MELLITUS MANAGEMENT
     Dosage: DOSE: 50MG/850MG       DAILY DOSE:  100MG/1700MG
     Route: 048
     Dates: start: 2010
  9. ADIPEPT [Concomitant]
     Indication: GASTROOESOPHAGEAL REFLUX DISEASE
     Route: 048
     Dates: start: 201712
  10. ATENSINA [Suspect]
     Active Substance: CLONIDINE
     Route: 048
     Dates: start: 201704, end: 201805
  11. ASPIRINA PREVENT [Concomitant]
     Active Substance: ASPIRIN
     Indication: CEREBROVASCULAR ACCIDENT PROPHYLAXIS
     Route: 048
  12. HIPERTIL [Concomitant]
     Indication: HYPERTENSION
     Dosage: DOSE: 10/30MG    DAILY DOSE: 10/30MG
     Route: 048
     Dates: start: 2013
  13. INDAPEN [Concomitant]
     Active Substance: INDAPAMIDE
     Indication: HYPERTENSION
     Dosage: THERAPY START DATE: MORE THAN 10 YEARS AGO.
     Route: 048

REACTIONS (12)
  - Clavicle fracture [Not Recovered/Not Resolved]
  - Osteopenia [Not Recovered/Not Resolved]
  - Spinal fracture [Recovered/Resolved]
  - Fall [Recovered/Resolved]
  - Bedridden [Recovered/Resolved]
  - Craniocerebral injury [Unknown]
  - Gastritis [Unknown]
  - Expired product administered [Recovered/Resolved]
  - Presyncope [Unknown]
  - Balance disorder [Unknown]
  - Weight decreased [Recovered/Resolved]
  - Fall [Recovered/Resolved]

NARRATIVE: CASE EVENT DATE: 20170418
